FAERS Safety Report 18514259 (Version 1)
Quarter: 2020Q4

REPORT INFORMATION
  Report Type: Spontaneous
  Country: US (occurrence: US)
  Receive Date: 20201117
  Receipt Date: 20201117
  Transmission Date: 20210114
  Serious: No
  Sender: FDA-Public Use
  Company Number: US-NALPROPION PHARMACEUTICALS INC.-2019-009350

PATIENT
  Sex: Female
  Weight: 111.11 kg

DRUGS (8)
  1. CONTRAVE [Suspect]
     Active Substance: BUPROPION HYDROCHLORIDE\NALTREXONE HYDROCHLORIDE
     Indication: WEIGHT CONTROL
     Dosage: ONE TABLET DAILY
     Route: 048
     Dates: start: 20191114, end: 20191126
  2. MELATONIN [Concomitant]
     Active Substance: MELATONIN
     Indication: SLEEP DISORDER
     Dosage: 10 MG DAILY (STARTED TWO YEARS AGO)
     Route: 048
  3. CONTRAVE [Suspect]
     Active Substance: BUPROPION HYDROCHLORIDE\NALTREXONE HYDROCHLORIDE
     Dosage: TWO TABLETS AM, ONE TABLET PM
     Route: 048
     Dates: start: 20191204, end: 20191210
  4. CONTRAVE [Suspect]
     Active Substance: BUPROPION HYDROCHLORIDE\NALTREXONE HYDROCHLORIDE
     Dosage: TWO TABLETS AM, TWO TABLETS PM
     Route: 048
     Dates: start: 20191211
  5. CONTRAVE [Suspect]
     Active Substance: BUPROPION HYDROCHLORIDE\NALTREXONE HYDROCHLORIDE
     Dosage: ONE TABLET AM, ONE TABLET PM
     Route: 048
     Dates: start: 20191127, end: 20191203
  6. SYNTHROID [Concomitant]
     Active Substance: LEVOTHYROXINE SODIUM
     Indication: HYPOTHYROIDISM
     Dosage: 137 MCG DAILY (STARTED 20 YEARS AGO)
     Route: 048
  7. PERDIEM                            /00650701/ [Concomitant]
     Dosage: TWO WEEKS AGO INCREASED TO TWO 10MG TABS INSTEAD OF ONE
     Route: 048
     Dates: start: 201912
  8. PERDIEM                            /00650701/ [Concomitant]
     Indication: CONSTIPATION
     Dosage: 10 MG ONCE A DAY (STARTED 2 OR 3 YEARS AGO)
     Route: 048

REACTIONS (9)
  - Myopia [Not Recovered/Not Resolved]
  - Stress [Unknown]
  - Blepharospasm [Recovered/Resolved]
  - Vision blurred [Unknown]
  - Nausea [Unknown]
  - Ill-defined disorder [Unknown]
  - Constipation [Unknown]
  - Dry eye [Unknown]
  - Fatigue [Unknown]

NARRATIVE: CASE EVENT DATE: 2019
